FAERS Safety Report 4526369-5 (Version None)
Quarter: 2004Q4

REPORT INFORMATION
  Report Type: 
  Country: None (occurrence: None)
  Receive Date: 20041214
  Receipt Date: 20041203
  Transmission Date: 20050328
  Serious: Yes (Hospitalization, Other)
  Sender: FDA-Public Use
  Company Number: US-GLAXOSMITHKLINE-A0535991A

PATIENT
  Sex: Female

DRUGS (1)
  1. TUMS [Suspect]
     Indication: DYSPEPSIA
     Route: 048

REACTIONS (3)
  - CALCINOSIS [None]
  - HEPATIC CYST [None]
  - PANCREATIC CYST [None]
